FAERS Safety Report 6457369-6 (Version None)
Quarter: 2009Q4

REPORT INFORMATION
  Report Type: 
  Country: None (occurrence: None)
  Receive Date: 20091125
  Receipt Date: 20091123
  Transmission Date: 20100525
  Serious: Yes (Death, Hospitalization)
  Sender: FDA-Public Use
  Company Number: MX-ABBOTT-09P-107-0603510-00

PATIENT
  Sex: Male
  Weight: 58 kg

DRUGS (1)
  1. KALETRA [Suspect]
     Indication: HIV INFECTION
     Dosage: 800/200MG DAILY
     Dates: start: 20060830

REACTIONS (1)
  - MENINGITIS CRYPTOCOCCAL [None]
